FAERS Safety Report 24760853 (Version 1)
Quarter: 2024Q4

REPORT INFORMATION
  Report Type: Spontaneous
  Country: US (occurrence: US)
  Receive Date: 20241220
  Receipt Date: 20241220
  Transmission Date: 20250114
  Serious: No
  Sender: MYLAN
  Company Number: US-MYLANLABS-2024M1109829

PATIENT
  Age: 71 Year
  Sex: Female
  Weight: 52.16 kg

DRUGS (1)
  1. TYRVAYA [Suspect]
     Active Substance: VARENICLINE TARTRATE
     Indication: Dry eye
     Dosage: 0.03 MILLIGRAM, BID (1 SPRAY EACH NOSTRIL, TWICE A DAY; MORNING AND NIGHT)
     Route: 045
     Dates: start: 20241104

REACTIONS (1)
  - Therapeutic response changed [Unknown]

NARRATIVE: CASE EVENT DATE: 20241101
